FAERS Safety Report 11702628 (Version 1)
Quarter: 2015Q4

REPORT INFORMATION
  Report Type: Spontaneous
  Country: JP (occurrence: JP)
  Receive Date: 20151105
  Receipt Date: 20151105
  Transmission Date: 20160304
  Serious: Yes (Other)
  Sender: FDA-Public Use
  Company Number: JP-ACTAVIS-2015-21521

PATIENT
  Age: 72 Year
  Sex: Male

DRUGS (4)
  1. WARFARIN (UNKNOWN) [Suspect]
     Active Substance: WARFARIN
     Dosage: 3 MG, UNKNOWN
     Route: 065
  2. CLOPIDOGREL (UNKNOWN) [Suspect]
     Active Substance: CLOPIDOGREL BISULFATE
     Indication: PRODUCT USED FOR UNKNOWN INDICATION
  3. ASPIRIN (UNKNOWN) [Suspect]
     Active Substance: ASPIRIN
  4. WARFARIN (UNKNOWN) [Suspect]
     Active Substance: WARFARIN
     Indication: PRODUCT USED FOR UNKNOWN INDICATION
     Dosage: 2.5 MG, UNKNOWN
     Route: 065

REACTIONS (3)
  - Aortic aneurysm [Unknown]
  - Drug ineffective [Not Recovered/Not Resolved]
  - Haemoptysis [Recovered/Resolved]
